FAERS Safety Report 9119682 (Version 1)
Quarter: 2013Q1

REPORT INFORMATION
  Report Type: Spontaneous
  Country: DK (occurrence: None)
  Receive Date: 20130130
  Receipt Date: 20130130
  Transmission Date: 20140127
  Serious: No
  Sender: FDA-Public Use
  Company Number: 2013MA000733

PATIENT
  Age: 70 Year
  Sex: Female

DRUGS (7)
  1. METFORMIN HYDROCHLORIDE [Suspect]
     Indication: TYPE 2 DIABETES MELLITUS
     Route: 048
     Dates: end: 20121217
  2. LATANOPROST [Concomitant]
  3. ATORVASTATIN [Concomitant]
  4. PANTOPRAZOLE [Concomitant]
  5. PIOGLITAZONE [Concomitant]
  6. ALENDRONIC ACID [Concomitant]
  7. METFORMIN [Concomitant]

REACTIONS (3)
  - Blindness transient [None]
  - Headache [None]
  - Vision blurred [None]
